FAERS Safety Report 9433082 (Version 1)
Quarter: 2013Q3

REPORT INFORMATION
  Report Type: Spontaneous
  Country: IN (occurrence: IN)
  Receive Date: 20130731
  Receipt Date: 20130731
  Transmission Date: 20140515
  Serious: Yes (Other)
  Sender: FDA-Public Use
  Company Number: IN-ACTAVIS-2013-12964

PATIENT
  Age: 9 Year
  Sex: Female

DRUGS (1)
  1. CARBAMAZEPINE (UNKNOWN) [Suspect]
     Indication: CONVULSION
     Dosage: UNK
     Route: 065

REACTIONS (3)
  - Petit mal epilepsy [Recovered/Resolved]
  - Myoclonus [Recovered/Resolved]
  - Condition aggravated [Recovered/Resolved]
